FAERS Safety Report 6590300-1 (Version None)
Quarter: 2010Q1

REPORT INFORMATION
  Report Type: 
  Country: None (occurrence: None)
  Receive Date: 20100219
  Receipt Date: 20100212
  Transmission Date: 20100710
  Serious: Yes (Other)
  Sender: FDA-Public Use
  Company Number: US-RB-017652-09

PATIENT
  Age: 55 Year
  Sex: Female

DRUGS (3)
  1. SUBOXONE [Suspect]
     Route: 060
     Dates: start: 20090625
  2. AMLODIPINE [Concomitant]
     Indication: HYPERTENSION
     Route: 048
  3. LISINOPRIL [Concomitant]
     Indication: HYPERTENSION
     Route: 048

REACTIONS (2)
  - DYSKINESIA [None]
  - HALLUCINATION [None]
